FAERS Safety Report 13594001 (Version 2)
Quarter: 2022Q1

REPORT INFORMATION
  Report Type: Report from Study
  Country: US (occurrence: US)
  Receive Date: 20170530
  Receipt Date: 20220301
  Transmission Date: 20220423
  Serious: Yes (Other)
  Sender: FDA-Public Use
  Company Number: US-TEVA-772960USA

PATIENT
  Age: 33 Year
  Sex: Female

DRUGS (1)
  1. CLARAVIS [Suspect]
     Active Substance: ISOTRETINOIN
     Dates: end: 2017

REACTIONS (2)
  - Suicidal ideation [Unknown]
  - Mania [Unknown]

NARRATIVE: CASE EVENT DATE: 20170101
